FAERS Safety Report 15271357 (Version 2)
Quarter: 2018Q3

REPORT INFORMATION
  Report Type: Spontaneous
  Country: US (occurrence: US)
  Receive Date: 20180813
  Receipt Date: 20180925
  Transmission Date: 20181010
  Serious: No
  Sender: FDA-Public Use
  Company Number: US-BAYER-2018-151020

PATIENT
  Age: 27 Year
  Sex: Female
  Weight: 63.95 kg

DRUGS (3)
  1. SEMAGLUTIDE [Concomitant]
     Active Substance: SEMAGLUTIDE
     Dosage: UNK
     Dates: start: 20180614
  2. KYLEENA [Suspect]
     Active Substance: LEVONORGESTREL
     Indication: CONTRACEPTION
     Dosage: 17.5 MCG/24HR, CONT
     Route: 015
     Dates: start: 20180627, end: 20180731
  3. RETIN?A [Concomitant]
     Active Substance: TRETINOIN

REACTIONS (3)
  - Procedural pain [Recovered/Resolved]
  - Device expulsion [None]
  - Acne [None]

NARRATIVE: CASE EVENT DATE: 201806
